FAERS Safety Report 4692342-X (Version None)
Quarter: 2005Q2

REPORT INFORMATION
  Report Type: 
  Country: None (occurrence: None)
  Receive Date: 20050614
  Receipt Date: 20050606
  Transmission Date: 20051028
  Serious: Yes (Other)
  Sender: FDA-Public Use
  Company Number: 2005082286

PATIENT
  Age: 76 Year
  Sex: Female

DRUGS (1)
  1. FRAGMIN [Suspect]
     Indication: THROMBOSIS PROPHYLAXIS
     Dosage: 5000 IU (5000 IU, 1 IN 1 D) SUBCUTANEOUS
     Route: 058
     Dates: start: 20050511, end: 20050515

REACTIONS (3)
  - ECCHYMOSIS [None]
  - OEDEMA PERIPHERAL [None]
  - THROMBOSIS [None]
